FAERS Safety Report 14921866 (Version 1)
Quarter: 2018Q2

REPORT INFORMATION
  Report Type: Spontaneous
  Country: FR (occurrence: FR)
  Receive Date: 20180522
  Receipt Date: 20180522
  Transmission Date: 20180711
  Serious: Yes (Other)
  Sender: FDA-Public Use
  Company Number: FR-MERCK KGAA-2048208

PATIENT
  Age: 49 Year
  Sex: Female

DRUGS (1)
  1. NOVOTHYROX [Suspect]
     Active Substance: LEVOTHYROXINE SODIUM
     Indication: HYPOTHYROIDISM
     Dates: start: 201703, end: 201710

REACTIONS (27)
  - Intellectual disability [Recovering/Resolving]
  - Apathy [Recovering/Resolving]
  - Decreased activity [Recovering/Resolving]
  - Mental fatigue [Recovering/Resolving]
  - Fatigue [Recovering/Resolving]
  - Asthenia [Recovering/Resolving]
  - Alopecia [Recovering/Resolving]
  - Disturbance in attention [Recovering/Resolving]
  - Pain in extremity [Recovering/Resolving]
  - Anxiety [Recovering/Resolving]
  - Myalgia [Recovering/Resolving]
  - Photopsia [Recovering/Resolving]
  - Feeling guilty [Recovering/Resolving]
  - Diarrhoea [Recovering/Resolving]
  - Visual impairment [Recovering/Resolving]
  - Gastrointestinal disorder [Recovering/Resolving]
  - Menstrual disorder [Recovering/Resolving]
  - Palpitations [Recovering/Resolving]
  - Hypersomnia [Recovering/Resolving]
  - Abdominal pain upper [Recovering/Resolving]
  - Gait disturbance [Recovering/Resolving]
  - Abdominal pain [Recovering/Resolving]
  - Self esteem decreased [Recovering/Resolving]
  - Memory impairment [Recovering/Resolving]
  - Migraine with aura [Recovering/Resolving]
  - Aggression [Recovering/Resolving]
  - Hyperhidrosis [Recovering/Resolving]

NARRATIVE: CASE EVENT DATE: 201706
